FAERS Safety Report 5926643-1 (Version None)
Quarter: 2008Q4

REPORT INFORMATION
  Report Type: 
  Country: None (occurrence: None)
  Receive Date: 20081017
  Receipt Date: 20081006
  Transmission Date: 20090506
  Serious: Yes (Other)
  Sender: FDA-Public Use
  Company Number: 2008AL011185

PATIENT
  Age: 54 Year
  Sex: Male

DRUGS (2)
  1. MIRTAZAPINE [Suspect]
     Dosage: 15 MG;QD
     Dates: start: 20070201
  2. ALCOHOL [Concomitant]

REACTIONS (9)
  - ABNORMAL BEHAVIOUR [None]
  - ABNORMAL DREAMS [None]
  - ALCOHOL POISONING [None]
  - AMNESIA [None]
  - IMPRISONMENT [None]
  - INSOMNIA [None]
  - OEDEMA PERIPHERAL [None]
  - TREATMENT NONCOMPLIANCE [None]
  - UNEVALUABLE EVENT [None]
